FAERS Safety Report 4570123-5 (Version None)
Quarter: 2005Q1

REPORT INFORMATION
  Report Type: 
  Country: None (occurrence: None)
  Receive Date: 20050131
  Receipt Date: 20050126
  Transmission Date: 20050727
  Serious: Yes (Other)
  Sender: FDA-Public Use
  Company Number: 2005-01-1778

PATIENT
  Age: 36 Month
  Sex: Female

DRUGS (2)
  1. CLARITIN [Suspect]
     Indication: RHINORRHOEA
     Dosage: 5 ML ORAL
     Route: 048
     Dates: start: 20050121, end: 20050121
  2. CLARITIN [Suspect]
     Indication: SNEEZING
     Dosage: 5 ML ORAL
     Route: 048
     Dates: start: 20050121, end: 20050121

REACTIONS (2)
  - CONDITION AGGRAVATED [None]
  - CONVULSION [None]
